FAERS Safety Report 7045576-3 (Version None)
Quarter: 2010Q4

REPORT INFORMATION
  Report Type: 
  Country: None (occurrence: None)
  Receive Date: 20101013
  Receipt Date: 20101013
  Transmission Date: 20110411
  Serious: No
  Sender: FDA-Public Use
  Company Number: None

PATIENT
  Age: 40 Year
  Sex: Female
  Weight: 96.1626 kg

DRUGS (3)
  1. OXYCONTIN [Suspect]
     Indication: BACK PAIN
     Dosage: 80MG 3 TIMES A DAY PO
     Route: 048
     Dates: start: 20100913, end: 20101011
  2. OXYCONTIN [Suspect]
     Indication: HEPATIC NEOPLASM MALIGNANT
     Dosage: 80MG 3 TIMES A DAY PO
     Route: 048
     Dates: start: 20100913, end: 20101011
  3. OXYCONTIN [Suspect]
     Indication: PAIN IN EXTREMITY
     Dosage: 80MG 3 TIMES A DAY PO
     Route: 048
     Dates: start: 20100913, end: 20101011

REACTIONS (5)
  - DRUG EFFECT DECREASED [None]
  - NAUSEA [None]
  - PRODUCT FORMULATION ISSUE [None]
  - PRODUCT SUBSTITUTION ISSUE [None]
  - VOMITING [None]
